FAERS Safety Report 19090846 (Version 2)
Quarter: 2021Q3

REPORT INFORMATION
  Report Type: Spontaneous
  Country: US (occurrence: US)
  Receive Date: 20210405
  Receipt Date: 20210922
  Transmission Date: 20211014
  Serious: No
  Sender: FDA-Public Use
  Company Number: US-AMGEN-USASP2021050544

PATIENT
  Age: 77 Year
  Sex: Female

DRUGS (1)
  1. MVASI [Suspect]
     Active Substance: BEVACIZUMAB-AWWB
     Indication: UTERINE CANCER
     Dosage: UNK
     Route: 065

REACTIONS (1)
  - Laboratory test [Unknown]

NARRATIVE: CASE EVENT DATE: 20210310
